FAERS Safety Report 4640266-6 (Version None)
Quarter: 2005Q2

REPORT INFORMATION
  Report Type: 
  Country: None (occurrence: None)
  Receive Date: 20050420
  Receipt Date: 20050411
  Transmission Date: 20051028
  Serious: Yes (Other)
  Sender: FDA-Public Use
  Company Number: GB-GLAXOSMITHKLINE-B0377464A

PATIENT
  Age: 59 Year
  Sex: Female

DRUGS (4)
  1. AVANDAMET [Suspect]
     Route: 048
     Dates: start: 20040227
  2. PROPRANOLOL [Concomitant]
     Route: 065
  3. THYROXINE [Concomitant]
     Route: 065
  4. NITROLINGUAL PUMPSPRAY [Concomitant]

REACTIONS (11)
  - ABDOMINAL PAIN UPPER [None]
  - ASTHENIA [None]
  - CONFUSIONAL STATE [None]
  - HYPERHIDROSIS [None]
  - LACTIC ACIDOSIS [None]
  - LYMPHADENOPATHY [None]
  - MUSCULOSKELETAL STIFFNESS [None]
  - THYROXINE ABNORMAL [None]
  - TRANCE [None]
  - URINARY TRACT INFECTION [None]
  - WEIGHT INCREASED [None]
